FAERS Safety Report 11594588 (Version 1)
Quarter: 2015Q4

REPORT INFORMATION
  Report Type: Report from Study
  Country: TR (occurrence: TR)
  Receive Date: 20151005
  Receipt Date: 20151005
  Transmission Date: 20160304
  Serious: Yes (Other)
  Sender: FDA-Public Use
  Company Number: TR-BAYER-2015-432277

PATIENT
  Age: 10 Year

DRUGS (2)
  1. ASA [Suspect]
     Active Substance: ASPIRIN
     Indication: DRUG PROVOCATION TEST
  2. IBUPROFEN. [Suspect]
     Active Substance: IBUPROFEN

REACTIONS (1)
  - Drug hypersensitivity [None]
